FAERS Safety Report 5200431-6 (Version None)
Quarter: 2006Q4

REPORT INFORMATION
  Report Type: 
  Country: None (occurrence: None)
  Receive Date: 20061016
  Receipt Date: 20060727
  Transmission Date: 20070319
  Serious: No
  Sender: FDA-Public Use
  Company Number: 2006SP002814

PATIENT
  Age: 60 Year
  Sex: Female
  Weight: 136.0791 kg

DRUGS (3)
  1. LUNESTA [Suspect]
     Indication: INSOMNIA
     Dosage: 3MG;HS;ORAL
     Route: 048
     Dates: start: 20060701
  2. SOMA [Concomitant]
  3. TRAZODONE HCL [Concomitant]

REACTIONS (3)
  - DYSKINESIA [None]
  - FEELING HOT AND COLD [None]
  - HYPERHIDROSIS [None]
